FAERS Safety Report 7700904-8 (Version None)
Quarter: 2011Q3

REPORT INFORMATION
  Report Type: 
  Country: None (occurrence: None)
  Receive Date: 20110822
  Receipt Date: 20110812
  Transmission Date: 20111222
  Serious: Yes (Hospitalization, Other)
  Sender: FDA-Public Use
  Company Number: PHHO2011US13897

PATIENT
  Sex: Female
  Weight: 105.6 kg

DRUGS (3)
  1. CERTICAN [Suspect]
     Indication: RENAL TRANSPLANT
     Dosage: 0.75 MG, BID
     Dates: start: 20110808
  2. LOPRESSOR [Concomitant]
     Indication: BLOOD PRESSURE
     Dosage: 25 MG, BID
     Dates: start: 20110810
  3. TACROLIMUS [Suspect]
     Indication: RENAL TRANSPLANT

REACTIONS (3)
  - FLUID OVERLOAD [None]
  - COMPLICATIONS OF TRANSPLANTED KIDNEY [None]
  - HYPOXIA [None]
